FAERS Safety Report 23695440 (Version 3)
Quarter: 2024Q2

REPORT INFORMATION
  Report Type: Spontaneous
  Country: US (occurrence: US)
  Receive Date: 20240402
  Receipt Date: 20240524
  Transmission Date: 20240716
  Serious: Yes (Hospitalization, Other)
  Sender: FDA-Public Use
  Company Number: US-UCBSA-2024015498

PATIENT
  Sex: Female

DRUGS (2)
  1. CIMZIA [Suspect]
     Active Substance: CERTOLIZUMAB PEGOL
     Indication: Rheumatoid arthritis
     Dosage: 400 MILLIGRAM, EV 4 WEEKS IN THIGH OR ABDOMEN AS 2 EQUALLY DIVIDED INJECTION.
     Route: 058
  2. CIMZIA [Suspect]
     Active Substance: CERTOLIZUMAB PEGOL
     Dosage: 400 MILLIGRAM IN ABDOMEN OR THIGH AS 2 EQUALLY DIVIDED INJECTIONS AT 2 SITES, EVERY 4 WEEKS
     Route: 058

REACTIONS (1)
  - Pneumonia [Recovering/Resolving]
